FAERS Safety Report 21602665 (Version 3)
Quarter: 2022Q4

REPORT INFORMATION
  Report Type: Report from Study
  Country: US (occurrence: US)
  Receive Date: 20221116
  Receipt Date: 20221122
  Transmission Date: 20230113
  Serious: No
  Sender: FDA-Public Use
  Company Number: US-002147023-NVSC2022US258007

PATIENT
  Age: 77 Year
  Sex: Female

DRUGS (2)
  1. ENTRESTO [Suspect]
     Active Substance: SACUBITRIL\VALSARTAN
     Indication: Product used for unknown indication
     Dosage: UNK, BID
     Route: 048
     Dates: start: 20221013
  2. POTASSIUM [Suspect]
     Active Substance: POTASSIUM
     Indication: Blood potassium decreased
     Dosage: UNK
     Route: 065

REACTIONS (4)
  - Oesophageal irritation [Unknown]
  - Back pain [Unknown]
  - Fatigue [Unknown]
  - Blood potassium decreased [Unknown]

NARRATIVE: CASE EVENT DATE: 20221109
